FAERS Safety Report 18281938 (Version 2)
Quarter: 2020Q4

REPORT INFORMATION
  Report Type: Spontaneous
  Country: None (occurrence: US)
  Receive Date: 20200918
  Receipt Date: 20201028
  Transmission Date: 20210113
  Serious: Yes (Hospitalization)
  Sender: FDA-Public Use
  Company Number: US-BIO PRODUCTS LABORATORY LTD-2090891

PATIENT
  Age: 16 Year
  Sex: Male

DRUGS (3)
  1. GAMMAPLEX [Suspect]
     Active Substance: HUMAN IMMUNOGLOBULIN G
     Indication: ENCEPHALITIS
     Route: 042
     Dates: end: 20200706
  2. GAMMAPLEX [Suspect]
     Active Substance: HUMAN IMMUNOGLOBULIN G
     Indication: ENCEPHALOPATHY
     Route: 042
     Dates: end: 20200706
  3. TRAZODONE [Concomitant]
     Active Substance: TRAZODONE HYDROCHLORIDE

REACTIONS (5)
  - Repetitive speech [Unknown]
  - Aggression [Unknown]
  - Communication disorder [Unknown]
  - Autism spectrum disorder [Unknown]
  - Tic [Unknown]

NARRATIVE: CASE EVENT DATE: 20200706
